FAERS Safety Report 13955616 (Version 1)
Quarter: 2017Q3

REPORT INFORMATION
  Report Type: Spontaneous
  Country: US (occurrence: US)
  Receive Date: 20170911
  Receipt Date: 20170911
  Transmission Date: 20171128
  Serious: No
  Sender: FDA-Public Use
  Company Number: US-GLAXOSMITHKLINE-US2017139235

PATIENT
  Sex: Female

DRUGS (10)
  1. ANORO ELLIPTA [Suspect]
     Active Substance: UMECLIDINIUM BROMIDE\VILANTEROL TRIFENATATE
     Indication: DYSPNOEA
     Dosage: 1 PUFF(S), QD
     Route: 055
     Dates: start: 201706
  2. ASPIRIN. [Concomitant]
     Active Substance: ASPIRIN
  3. FLUVASTATIN [Concomitant]
     Active Substance: FLUVASTATIN SODIUM
  4. FUROSEMIDE. [Concomitant]
     Active Substance: FUROSEMIDE
  5. LOSARTAN. [Concomitant]
     Active Substance: LOSARTAN
  6. SPIRONOLACTONE. [Concomitant]
     Active Substance: SPIRONOLACTONE
  7. ISOSORBIDE MONONITRATE. [Concomitant]
     Active Substance: ISOSORBIDE MONONITRATE
  8. CARVEDILOL. [Concomitant]
     Active Substance: CARVEDILOL
  9. ATIVAN [Concomitant]
     Active Substance: LORAZEPAM
  10. PAROXETINE. [Concomitant]
     Active Substance: PAROXETINE

REACTIONS (10)
  - Chest pain [Unknown]
  - Cough [Recovered/Resolved]
  - Dysuria [Unknown]
  - Urinary incontinence [Unknown]
  - Musculoskeletal discomfort [Unknown]
  - Intentional dose omission [Unknown]
  - Swelling face [Unknown]
  - Drug dose omission [Unknown]
  - Neck pain [Unknown]
  - Pain in extremity [Recovered/Resolved]

NARRATIVE: CASE EVENT DATE: 2017
